FAERS Safety Report 13055951 (Version 2)
Quarter: 2017Q1

REPORT INFORMATION
  Report Type: Report from Study
  Country: US (occurrence: US)
  Receive Date: 20161222
  Receipt Date: 20170129
  Transmission Date: 20170428
  Serious: Yes (Hospitalization, Other)
  Sender: FDA-Public Use
  Company Number: US-MYLANLABS-2016M1057396

PATIENT

DRUGS (1)
  1. CLOZAPINE. [Suspect]
     Active Substance: CLOZAPINE
     Indication: PRODUCT USED FOR UNKNOWN INDICATION
     Route: 048

REACTIONS (12)
  - Pneumonia aspiration [Unknown]
  - Gastrointestinal haemorrhage [Unknown]
  - Acute kidney injury [Unknown]
  - Anaemia [Unknown]
  - Stress [Unknown]
  - Hypotension [Unknown]
  - Respiratory failure [Unknown]
  - Pica [Unknown]
  - Device dislocation [Unknown]
  - Dysphagia [Unknown]
  - Septic shock [Unknown]
  - Schizophrenia [Unknown]
